FAERS Safety Report 5952816-8 (Version None)
Quarter: 2008Q4

REPORT INFORMATION
  Report Type: 
  Country: None (occurrence: None)
  Receive Date: 20081114
  Receipt Date: 20081105
  Transmission Date: 20090506
  Serious: Yes (Other)
  Sender: FDA-Public Use
  Company Number: FR-JNJFOC-20080805419

PATIENT
  Sex: Male
  Weight: 103 kg

DRUGS (6)
  1. RISPERDAL CONSTA [Suspect]
     Route: 030
  2. RISPERDAL CONSTA [Suspect]
     Indication: PSYCHOTIC DISORDER
     Route: 030
  3. RISPERDAL [Suspect]
     Indication: PSYCHOTIC DISORDER
     Route: 048
  4. DEPAKOTE [Suspect]
     Indication: DYSTHYMIC DISORDER
     Route: 048
  5. TERCIAN [Suspect]
     Indication: ANXIETY
     Route: 048
  6. PROZAC [Suspect]
     Indication: DYSTHYMIC DISORDER
     Route: 048

REACTIONS (2)
  - HYPOTHYROIDISM [None]
  - OVERDOSE [None]
